FAERS Safety Report 24266435 (Version 1)
Quarter: 2024Q3

REPORT INFORMATION
  Report Type: Spontaneous
  Country: US (occurrence: None)
  Receive Date: 20240830
  Receipt Date: 20240830
  Transmission Date: 20241016
  Serious: No
  Sender: AXSOME THERAPEUTICS
  Company Number: US-Axsome Therapeutics, Inc.-AXS202406-000869

PATIENT
  Sex: Female

DRUGS (2)
  1. AUVELITY [Suspect]
     Active Substance: BUPROPION HYDROCHLORIDE\DEXTROMETHORPHAN HYDROBROMIDE
     Indication: Product used for unknown indication
     Route: 048
     Dates: start: 2023, end: 2024
  2. AUVELITY [Suspect]
     Active Substance: BUPROPION HYDROCHLORIDE\DEXTROMETHORPHAN HYDROBROMIDE
     Route: 048
     Dates: start: 2024

REACTIONS (7)
  - Feeling abnormal [Unknown]
  - Dissociation [Unknown]
  - Brain fog [Unknown]
  - Depersonalisation/derealisation disorder [Unknown]
  - Disturbance in attention [Unknown]
  - Loss of therapeutic response [Unknown]
  - Inappropriate schedule of product administration [Unknown]

NARRATIVE: CASE EVENT DATE: 20230101
